FAERS Safety Report 14720690 (Version 3)
Quarter: 2018Q2

REPORT INFORMATION
  Report Type: Report from Study
  Country: US (occurrence: US)
  Receive Date: 20180405
  Receipt Date: 20180503
  Transmission Date: 20180711
  Serious: Yes (Other)
  Sender: FDA-Public Use
  Company Number: US-SAOL THERAPEUTICS-2018SAO00453

PATIENT
  Age: 50 Year
  Sex: Female
  Weight: 92.63 kg

DRUGS (19)
  1. COMPOUNDED BACLOFEN [Suspect]
     Active Substance: BACLOFEN
     Dosage: 89.60 ?G, \DAY - MAX
     Route: 037
     Dates: start: 20180214, end: 20180220
  2. COMPOUNDED BACLOFEN [Suspect]
     Active Substance: BACLOFEN
     Dosage: 81.40 ?G, \DAY- MAX
     Route: 037
     Dates: start: 20180220
  3. BUPIVACAINE. [Suspect]
     Active Substance: BUPIVACAINE
     Dosage: 14.015 MG, \DAY
     Route: 037
     Dates: start: 20180214, end: 20180220
  4. DILAUDID [Suspect]
     Active Substance: HYDROMORPHONE HYDROCHLORIDE
     Dosage: 0.7007 MG, \DAY
     Route: 037
     Dates: start: 20180214, end: 20180220
  5. COMPOUNDED BACLOFEN [Suspect]
     Active Substance: BACLOFEN
     Dosage: 49.93 ?G, \DAY
     Route: 037
     Dates: start: 20180220
  6. BUPIVACAINE. [Suspect]
     Active Substance: BUPIVACAINE
     Dosage: 14.023 MG, \DAY
     Route: 037
     Dates: start: 20171102
  7. BUPIVACAINE. [Suspect]
     Active Substance: BUPIVACAINE
     Dosage: 9.987 MG, \DAY
     Route: 037
     Dates: start: 20180220
  8. BUPIVACAINE. [Suspect]
     Active Substance: BUPIVACAINE
     Dosage: 16.280 MG, \DAY- MAX
     Route: 037
     Dates: start: 20180220
  9. DILAUDID [Suspect]
     Active Substance: HYDROMORPHONE HYDROCHLORIDE
     Dosage: 0.7012 MG, \DAY
     Route: 037
     Dates: start: 20171102
  10. DILAUDID [Suspect]
     Active Substance: HYDROMORPHONE HYDROCHLORIDE
     Dosage: 0.8966 MG, \DAY - MAX
     Route: 037
     Dates: start: 20171102
  11. DILAUDID [Suspect]
     Active Substance: HYDROMORPHONE HYDROCHLORIDE
     Dosage: 0.8960 MG, \DAY
     Route: 037
     Dates: start: 20180214, end: 20180220
  12. DILAUDID [Suspect]
     Active Substance: HYDROMORPHONE HYDROCHLORIDE
     Dosage: 0.4993 MG, \DAY
     Route: 037
     Dates: start: 20180220
  13. COMPOUNDED BACLOFEN [Suspect]
     Active Substance: BACLOFEN
     Indication: PAIN
     Dosage: 70.12 ?G, \DAY
     Route: 037
     Dates: start: 20171102
  14. BUPIVACAINE. [Suspect]
     Active Substance: BUPIVACAINE
     Dosage: 17.920 MG, \DAY- MAX
     Route: 037
     Dates: start: 20180214, end: 20180220
  15. COMPOUNDED BACLOFEN [Suspect]
     Active Substance: BACLOFEN
     Dosage: 70.07 ?G, \DAY
     Route: 037
     Dates: start: 20180214, end: 20180220
  16. BUPIVACAINE. [Suspect]
     Active Substance: BUPIVACAINE
     Dosage: 17.931 MG, \DAY-MAX
     Route: 037
     Dates: start: 20171102
  17. ORAL OPIOIDS (UNSPECIFIED) [Concomitant]
  18. COMPOUNDED BACLOFEN [Suspect]
     Active Substance: BACLOFEN
     Dosage: 89.66 ?G, \DAY -MAX
     Route: 037
     Dates: start: 20171102
  19. DILAUDID [Suspect]
     Active Substance: HYDROMORPHONE HYDROCHLORIDE
     Dosage: 0.814 MG, \DAY- MAX
     Route: 037
     Dates: start: 20180220

REACTIONS (11)
  - Fall [Recovered/Resolved]
  - Device dislocation [Recovered/Resolved]
  - Mental status changes [Not Recovered/Not Resolved]
  - Hypoaesthesia [Not Recovered/Not Resolved]
  - Urinary incontinence [Not Recovered/Not Resolved]
  - Pain [Not Recovered/Not Resolved]
  - Drug effective for unapproved indication [Recovered/Resolved]
  - Dry mouth [Not Recovered/Not Resolved]
  - Muscular weakness [Recovered/Resolved]
  - Peroneal nerve palsy [Recovered/Resolved]
  - Implant site extravasation [Recovered/Resolved]

NARRATIVE: CASE EVENT DATE: 20180118
